FAERS Safety Report 10620145 (Version 2)
Quarter: 2015Q1

REPORT INFORMATION
  Report Type: Spontaneous
  Country: DE (occurrence: DE)
  Receive Date: 20141202
  Receipt Date: 20150311
  Transmission Date: 20150720
  Serious: Yes (Hospitalization, Other)
  Sender: FDA-Public Use
  Company Number: DE-BAYER-2014-175413

PATIENT
  Sex: Female

DRUGS (1)
  1. ULTRAVIST [Suspect]
     Active Substance: IOPROMIDE
     Dosage: UNK, ONCE
     Route: 037

REACTIONS (7)
  - Autoimmune thyroiditis [None]
  - Eczema [None]
  - Nausea [None]
  - Tachycardia [None]
  - Sleep disorder [None]
  - Headache [None]
  - Hearing impaired [None]
